FAERS Safety Report 10420785 (Version 1)
Quarter: 2014Q3

REPORT INFORMATION
  Report Type: Report from Study
  Country: US (occurrence: None)
  Receive Date: 20140804
  Receipt Date: 20140804
  Transmission Date: 20150326
  Serious: Yes (Hospitalization, Other)
  Sender: FDA-Public Use
  Company Number: 2012US006313

PATIENT
  Age: 74 Year
  Sex: Male
  Weight: 53.1 kg

DRUGS (3)
  1. SYMBICORT (BUDESONIDE, FORMOTEROL, FUMARATE) [Concomitant]
  2. GLASSIA [Suspect]
     Active Substance: .ALPHA.1-PROTEINASE INHIBITOR HUMAN
     Indication: ALPHA-1 ANTI-TRYPSIN DEFICIENCY
     Route: 042
     Dates: start: 20120831
  3. CHEMOTHERAPEUTICS [Suspect]
     Active Substance: UNSPECIFIED INGREDIENT
     Indication: LUNG NEOPLASM MALIGNANT
     Route: 042
     Dates: start: 201203, end: 20121106

REACTIONS (9)
  - Blood potassium decreased [None]
  - Lung cancer metastatic [None]
  - Pneumonia [None]
  - Asthenia [None]
  - Decreased appetite [None]
  - Weight decreased [None]
  - Metastases to bone [None]
  - Malaise [None]
  - Vomiting [None]

NARRATIVE: CASE EVENT DATE: 201111
